FAERS Safety Report 21395010 (Version 2)
Quarter: 2025Q2

REPORT INFORMATION
  Report Type: Spontaneous
  Country: US (occurrence: US)
  Receive Date: 20220930
  Receipt Date: 20250531
  Transmission Date: 20250716
  Serious: Yes (Other)
  Sender: AUROBINDO
  Company Number: US-AUROBINDO-AUR-APL-2022-039470

PATIENT
  Age: 67 Year
  Sex: Male
  Weight: 132 kg

DRUGS (8)
  1. GABAPENTIN [Suspect]
     Active Substance: GABAPENTIN
     Indication: Neck pain
     Route: 065
  2. GABAPENTIN [Suspect]
     Active Substance: GABAPENTIN
     Indication: Back pain
  3. ACETAMINOPHEN [Suspect]
     Active Substance: ACETAMINOPHEN
     Indication: Neck pain
     Route: 065
  4. ACETAMINOPHEN [Suspect]
     Active Substance: ACETAMINOPHEN
     Indication: Back pain
  5. CYCLOBENZAPRINE [Suspect]
     Active Substance: CYCLOBENZAPRINE
     Indication: Neck pain
     Route: 065
  6. CYCLOBENZAPRINE [Suspect]
     Active Substance: CYCLOBENZAPRINE
     Indication: Back pain
  7. LIDOCAINE [Concomitant]
     Active Substance: LIDOCAINE
     Indication: Neck pain
     Route: 040
  8. LIDOCAINE [Concomitant]
     Active Substance: LIDOCAINE
     Indication: Back pain
     Route: 065

REACTIONS (2)
  - Pain [Unknown]
  - Drug ineffective [Unknown]
